FAERS Safety Report 13833717 (Version 2)
Quarter: 2017Q3

REPORT INFORMATION
  Report Type: Report from Study
  Country: US (occurrence: US)
  Receive Date: 20170804
  Receipt Date: 20170929
  Transmission Date: 20171127
  Serious: Yes (Death)
  Sender: FDA-Public Use
  Company Number: US-PFIZER INC-2017336561

PATIENT
  Age: 79 Year
  Sex: Female
  Weight: 69.84 kg

DRUGS (5)
  1. IBRANCE [Suspect]
     Active Substance: PALBOCICLIB
  2. ENTRESTO [Concomitant]
     Active Substance: SACUBITRIL\VALSARTAN
     Dosage: UNK
     Route: 048
     Dates: start: 2017
  3. TRAMADOL. [Concomitant]
     Active Substance: TRAMADOL
     Dosage: UNK
     Route: 048
     Dates: start: 2017
  4. CELEXA [Concomitant]
     Active Substance: CITALOPRAM HYDROBROMIDE
     Dosage: UNK
     Route: 048
     Dates: start: 2017
  5. FEMARA [Concomitant]
     Active Substance: LETROZOLE
     Dosage: UNK
     Route: 048
     Dates: start: 2017

REACTIONS (2)
  - Arrhythmia [Fatal]
  - Cardiomyopathy [Fatal]

NARRATIVE: CASE EVENT DATE: 20170730
